FAERS Safety Report 23524016 (Version 1)
Quarter: 2024Q1

REPORT INFORMATION
  Report Type: Spontaneous
  Country: IT (occurrence: IT)
  Receive Date: 20240214
  Receipt Date: 20240214
  Transmission Date: 20240410
  Serious: Yes (Life-Threatening, Hospitalization, Other)
  Sender: FDA-Public Use
  Company Number: IT-HIKMA PHARMACEUTICALS-IT-H14001-24-00806

PATIENT
  Age: 58 Year
  Sex: Male
  Weight: 111.5 kg

DRUGS (16)
  1. GEMCITABINE HYDROCHLORIDE [Suspect]
     Active Substance: GEMCITABINE HYDROCHLORIDE
     Indication: Ductal adenocarcinoma of pancreas
     Dosage: 2000 MILLIGRAM, SINGLE
     Route: 042
     Dates: start: 20231120, end: 20231120
  2. GEMCITABINE HYDROCHLORIDE [Suspect]
     Active Substance: GEMCITABINE HYDROCHLORIDE
     Dosage: 2000 MILLIGRAM, SINGLE
     Route: 042
     Dates: start: 20231204, end: 20231204
  3. PACLITAXEL [Suspect]
     Active Substance: PACLITAXEL
     Indication: Ductal adenocarcinoma of pancreas
     Dosage: 250 MILLIGRAM, SINGLE
     Route: 042
     Dates: start: 20231204, end: 20231204
  4. PACLITAXEL [Suspect]
     Active Substance: PACLITAXEL
     Dosage: 250 MILLIGRAM, SINGLE
     Route: 042
     Dates: start: 20231120, end: 20231120
  5. PLACEBO [Suspect]
     Active Substance: UNSPECIFIED INGREDIENT
     Indication: Ductal adenocarcinoma of pancreas
     Dosage: 29.7 MILLIGRAM, BIW
     Route: 058
     Dates: start: 20231120, end: 20231121
  6. PLACEBO [Suspect]
     Active Substance: UNSPECIFIED INGREDIENT
     Dosage: 29.7 MILLIGRAM
     Route: 058
     Dates: start: 20231123, end: 20231123
  7. PANTOPRAZOLE [Concomitant]
     Active Substance: PANTOPRAZOLE
     Indication: Prophylaxis
     Dosage: 40 MILLIGRAM, QD
     Route: 048
     Dates: start: 20230930
  8. ALLOPURINOL [Concomitant]
     Active Substance: ALLOPURINOL
     Indication: Hyperuricaemia
     Dosage: 100 MILLIGRAM, QD
     Route: 048
     Dates: start: 20231121
  9. DIGOXIN [Concomitant]
     Active Substance: DIGOXIN
     Indication: Cardiac failure
     Dosage: 0.5 MILLILITER, SINGLE
     Route: 042
     Dates: start: 20231227
  10. FOLIC ACID [Concomitant]
     Active Substance: FOLIC ACID
     Indication: Nutritional supplementation
     Dosage: 5 MILLIGRAM, QD
     Route: 048
     Dates: start: 202308
  11. SINTOTRAT [Concomitant]
     Indication: Joint swelling
     Dosage: UNK
     Route: 061
     Dates: start: 20231121
  12. ENOXAPARIN SODIUM [Concomitant]
     Active Substance: ENOXAPARIN SODIUM
     Indication: COVID-19 treatment
     Dosage: UNK, BID
     Route: 065
     Dates: start: 20231124, end: 20231129
  13. PAXLOVID [Concomitant]
     Active Substance: NIRMATRELVIR\RITONAVIR
     Indication: COVID-19 treatment
     Dosage: UNK, BID
     Route: 048
     Dates: start: 20231125, end: 20231129
  14. INDOMETHACIN [Concomitant]
     Active Substance: INDOMETHACIN
     Indication: Arthralgia
     Dosage: 1 DOSAGE FORM
     Route: 048
     Dates: start: 20231121
  15. RIVAROXABAN [Concomitant]
     Active Substance: RIVAROXABAN
     Indication: Anticoagulant therapy
     Dosage: 20 MILLIGRAM, QD
     Route: 048
  16. OLMESARTAN [Concomitant]
     Active Substance: OLMESARTAN
     Indication: Hypertension
     Dosage: 10 MILLIGRAM, QD
     Route: 048

REACTIONS (1)
  - Cardiac failure [Not Recovered/Not Resolved]

NARRATIVE: CASE EVENT DATE: 20231227
